FAERS Safety Report 7534217-4 (Version None)
Quarter: 2011Q2

REPORT INFORMATION
  Report Type: 
  Country: None (occurrence: None)
  Receive Date: 20110608
  Receipt Date: 20061218
  Transmission Date: 20111010
  Serious: Yes (Death, Hospitalization, Other)
  Sender: FDA-Public Use
  Company Number: PHMT2006CA02106

PATIENT
  Sex: Male

DRUGS (4)
  1. HALDOL [Concomitant]
     Dosage: 5 MG, PRN
  2. CLOZAPINE [Suspect]
     Indication: SCHIZOPHRENIA
     Dosage: 250 MG, QD
     Route: 048
     Dates: start: 20060212
  3. CLOZAPINE [Suspect]
     Dosage: DOSE WAS INCREASED FROM 25 MG TO 100 MG
     Route: 048
     Dates: start: 20061110, end: 20061114
  4. RISPERDAL [Concomitant]
     Dosage: 3 MG, QD

REACTIONS (2)
  - ANEURYSM RUPTURED [None]
  - CEREBRAL HAEMORRHAGE [None]
